FAERS Safety Report 4648482-4 (Version None)
Quarter: 2005Q2

REPORT INFORMATION
  Report Type: 
  Country: None (occurrence: None)
  Receive Date: 20050427
  Receipt Date: 20050411
  Transmission Date: 20051028
  Serious: Yes (Life-Threatening, Hospitalization)
  Sender: FDA-Public Use
  Company Number: 2005-DE-01373GD

PATIENT
  Age: 66 Year
  Sex: Female

DRUGS (19)
  1. HYDROCHLOROTHIAZIDE [Suspect]
     Dosage: 50 MG (NR); NR
  2. ACETAMINOPHEN [Suspect]
     Dosage: ON POSTOPERATIVE DAYS 1 TO 11 DOSES OF 2 TO 4 G (AVERAGE 3 G) PER DAY (NR), NR
  3. FUROSEMIDE [Suspect]
     Dosage: POSTOPERATIVELY 150 MG FOR 2 DAYS (NR), NR (SEE IMAGE)
  4. AMIODARONE HCL [Suspect]
     Indication: ATRIAL FIBRILLATION
     Dosage: AS BOLUS ON THE DAY OF THE SURGERY (NR); IV
     Route: 042
  5. AMIODARONE HCL [Suspect]
     Indication: VENTRICULAR FIBRILLATION
     Dosage: AS BOLUS ON THE DAY OF THE SURGERY (NR); IV
     Route: 042
  6. AMIODARONE HCL [Suspect]
     Indication: VENTRICULAR FIBRILLATION
     Dosage: 100 MG (100 MG); PO
     Route: 048
  7. PROPOFOL [Suspect]
     Indication: SEDATION
     Dosage: 50 MG (NR, ON POSTOPERATIVE DAYS 1 TO 14), NR
  8. ESTRADIOL W/NORETHISTERONE ACETATE (KLIOGEST ^NOVO INDUSTRI^) [Suspect]
     Indication: HORMONE REPLACEMENT THERAPY
     Dosage: 2 MG ESTRADIOL AND 1 MG NORETHISTERONE ACETATE PER DAY (NR), NR
  9. PRAVASTATIN [Suspect]
     Dosage: 20 MG (NR), NR
  10. METOPROLOL TARTRATE [Suspect]
     Dosage: 12.5 MG (NR), NR
  11. ACETYLCYSTEINE [Concomitant]
  12. DIGOXIN [Concomitant]
  13. MORPHINE [Concomitant]
  14. AMILORIDE [Concomitant]
  15. MIDAZOLAM HCL [Concomitant]
  16. INSULIN [Concomitant]
  17. HEPARIN [Concomitant]
  18. SUCRALFATE [Concomitant]
  19. APROTININ [Concomitant]

REACTIONS (12)
  - ATRIAL FIBRILLATION [None]
  - BRADYCARDIA [None]
  - CARDIAC INDEX DECREASED [None]
  - CARDIAC OUTPUT DECREASED [None]
  - DEPRESSED LEVEL OF CONSCIOUSNESS [None]
  - DRUG TOXICITY [None]
  - HEART RATE INCREASED [None]
  - HEPATOCELLULAR DAMAGE [None]
  - HEPATOTOXICITY [None]
  - MEAN ARTERIAL PRESSURE DECREASED [None]
  - POST PROCEDURAL COMPLICATION [None]
  - REACTION TO MEDICAL AGENT PRESERVATIVES [None]
